FAERS Safety Report 9367951 (Version 1)
Quarter: 2013Q2

REPORT INFORMATION
  Report Type: Spontaneous
  Country: US (occurrence: US)
  Receive Date: 20130625
  Receipt Date: 20130625
  Transmission Date: 20140414
  Serious: Yes (Hospitalization)
  Sender: FDA-Public Use
  Company Number: US-ASTELLAS-2013US000466

PATIENT
  Age: 80 Year
  Sex: Female

DRUGS (4)
  1. VESICARE [Suspect]
     Indication: PRODUCT USED FOR UNKNOWN INDICATION
     Dosage: UNK
     Route: 048
     Dates: start: 2009
  2. ZOCOR [Concomitant]
     Indication: BLOOD CHOLESTEROL
     Dosage: 20 MG, UNKNOWN/D
     Route: 065
  3. HYZAAR [Concomitant]
     Indication: BLOOD PRESSURE
     Dosage: 50/25 MG
     Route: 065
  4. ATENOLOL [Concomitant]
     Indication: BLOOD PRESSURE
     Dosage: 1/2 25MG
     Route: 065

REACTIONS (1)
  - Faecaloma [Unknown]
